FAERS Safety Report 10033355 (Version 2)
Quarter: 2014Q2

REPORT INFORMATION
  Report Type: Spontaneous
  Country: US (occurrence: US)
  Receive Date: 20140325
  Receipt Date: 20140606
  Transmission Date: 20141212
  Serious: No
  Sender: FDA-Public Use
  Company Number: US-B.I. PHARMACEUTICALS,INC./RIDGEFIELD-2014-BI-11706BP

PATIENT
  Age: 72 Year
  Sex: Female

DRUGS (2)
  1. COMBIVENT [Suspect]
     Indication: HYPERSENSITIVITY
     Dosage: DOSE PER APPLICATION: 20 MCG/100 MCG; DAILY DOSE: 160 MCG/800 MCG
     Route: 055
     Dates: start: 20140313
  2. COMBIVENT [Suspect]
     Indication: RESPIRATORY TRACT INFECTION

REACTIONS (3)
  - Prescribed overdose [Unknown]
  - Off label use [Unknown]
  - Product quality issue [Unknown]
